FAERS Safety Report 8880659 (Version 2)
Quarter: 2014Q2

REPORT INFORMATION
  Report Type: Spontaneous
  Country: GB (occurrence: GB)
  Receive Date: 20121101
  Receipt Date: 20131018
  Transmission Date: 20141212
  Serious: Yes (Other)
  Sender: FDA-Public Use
  Company Number: GB-PFIZER INC-2012264649

PATIENT
  Age: 55 Year
  Sex: Female
  Weight: 73.93 kg

DRUGS (1)
  1. LATANOPROST [Suspect]
     Indication: GLAUCOMA
     Dosage: 1 DROP EACH EYE EVERY NIGHT
     Route: 047
     Dates: start: 20120110

REACTIONS (1)
  - Dermatitis acneiform [Not Recovered/Not Resolved]
